FAERS Safety Report 6456858-8 (Version None)
Quarter: 2009Q4

REPORT INFORMATION
  Report Type: 
  Country: None (occurrence: None)
  Receive Date: 20091125
  Receipt Date: 20091116
  Transmission Date: 20100525
  Serious: Yes (Hospitalization)
  Sender: FDA-Public Use
  Company Number: FR-PFIZER INC-2009301577

PATIENT
  Age: 24 Year
  Sex: Male

DRUGS (6)
  1. ATARAX [Suspect]
     Dosage: 300 MG, 1X/DAY
     Route: 048
     Dates: start: 20090916, end: 20090920
  2. ABILIFY [Suspect]
     Indication: SCHIZOPHRENIA
     Dosage: 40 MG, 1X/DAY
     Route: 048
     Dates: start: 20090701, end: 20090914
  3. ABILIFY [Suspect]
     Dosage: 30 MG, 1X/DAY
     Route: 048
     Dates: start: 20090915, end: 20090921
  4. FLUPENTIXOL DECANOATE [Suspect]
     Indication: SCHIZOPHRENIA
     Dosage: UNK
     Route: 048
     Dates: start: 20090630, end: 20090921
  5. TERCIAN [Suspect]
     Dosage: 100 MG, 1X/DAY
     Route: 048
     Dates: start: 20090724, end: 20090910
  6. LEPTICUR [Suspect]
     Dosage: 10 MG, 1X/DAY
     Route: 048
     Dates: start: 20090108, end: 20090921

REACTIONS (3)
  - ATRIOVENTRICULAR BLOCK [None]
  - BRADYCARDIA [None]
  - ELECTROCARDIOGRAM REPOLARISATION ABNORMALITY [None]
